FAERS Safety Report 4871178-0 (Version None)
Quarter: 2005Q4

REPORT INFORMATION
  Report Type: 
  Country: None (occurrence: None)
  Receive Date: 20051229
  Receipt Date: 20051214
  Transmission Date: 20060501
  Serious: Yes (Hospitalization, Other)
  Sender: FDA-Public Use
  Company Number: CA200512002484

PATIENT
  Age: 42 Year
  Sex: Male

DRUGS (1)
  1. ZYPREXA [Suspect]
     Dosage: SEE IMAGE

REACTIONS (3)
  - CONDITION AGGRAVATED [None]
  - CONVULSION [None]
  - TREATMENT NONCOMPLIANCE [None]
